FAERS Safety Report 8960983 (Version 4)
Quarter: 2014Q2

REPORT INFORMATION
  Report Type: Spontaneous
  Country: JP (occurrence: JP)
  Receive Date: 20121212
  Receipt Date: 20140413
  Transmission Date: 20141212
  Serious: Yes (Hospitalization, Disabling, Other)
  Sender: FDA-Public Use
  Company Number: JP-MERCK-1210JPN004972

PATIENT
  Age: 81 Year
  Sex: Female

DRUGS (19)
  1. BONALON [Suspect]
     Indication: OSTEOPOROSIS
     Dosage: 5 MG DAILY
     Route: 048
     Dates: start: 200404, end: 2006
  2. BONALON [Suspect]
     Indication: OSTEOPOROSIS
     Dosage: UNK
     Route: 048
     Dates: start: 2006, end: 201105
  3. RHEUMATREX [Suspect]
     Indication: RHEUMATOID ARTHRITIS
     Dosage: UNK
     Dates: end: 201105
  4. RHEUMATREX [Suspect]
     Dosage: UNK
     Dates: start: 201105, end: 20110722
  5. PREDONINE [Suspect]
     Indication: RHEUMATOID ARTHRITIS
     Dosage: 2.5 MG DAILY
     Route: 048
  6. ONEALFA [Concomitant]
     Indication: OSTEOPOROSIS
     Dosage: 1 MICROGRAM/DAY
     Route: 048
  7. EVISTA [Concomitant]
     Indication: OSTEOPOROSIS
     Dosage: 60 MILLIGRAM/DAY
     Route: 048
     Dates: start: 20110617
  8. MICARDIS [Concomitant]
     Indication: HYPERTENSION
     Dosage: 20 MILLIGRAM/DAY
     Route: 048
  9. LIPOVAS TABLETS 5 [Concomitant]
     Indication: DYSLIPIDAEMIA
     Dosage: 5 MILLIGRAM/DAY
     Route: 048
  10. GASTER [Concomitant]
     Indication: GASTRITIS
     Dosage: 20 MILLIGRAM/DAY
     Route: 048
  11. MARZULENE-S [Concomitant]
     Indication: GASTRITIS
     Dosage: 2 GRAM/DAY
     Route: 048
  12. OSTELUC [Concomitant]
     Dosage: 100 MILLIGRAM/DAY
     Route: 048
  13. HALCION [Concomitant]
     Indication: INSOMNIA
     Route: 048
  14. UREPEARL [Concomitant]
     Dosage: UNK
     Route: 062
  15. SANCOBA [Concomitant]
     Dosage: UNK
     Route: 031
  16. MOHRUS [Concomitant]
     Dosage: UNK
     Route: 062
  17. LOXONIN [Concomitant]
     Dosage: UNK
     Route: 062
  18. YAKUBAN [Concomitant]
     Dosage: UNK
     Route: 062
  19. PURSENNID (SENNOSIDES) [Concomitant]
     Indication: CONSTIPATION
     Route: 048

REACTIONS (3)
  - Osteomyelitis [Recovering/Resolving]
  - Osteonecrosis of jaw [Recovering/Resolving]
  - Osteomyelitis [Not Recovered/Not Resolved]
